FAERS Safety Report 20249846 (Version 2)
Quarter: 2022Q1

REPORT INFORMATION
  Report Type: Spontaneous
  Country: KR (occurrence: KR)
  Receive Date: 20211229
  Receipt Date: 20220114
  Transmission Date: 20220423
  Serious: Yes (Death, Other)
  Sender: FDA-Public Use
  Company Number: KR-009507513-2106KOR006457

PATIENT
  Age: 67 Year
  Sex: Female
  Weight: 76.8 kg

DRUGS (22)
  1. PREVYMIS [Suspect]
     Active Substance: LETERMOVIR
     Indication: Infection prophylaxis
     Dosage: STRENGTH: 480 MG. ONCE DAILY
     Route: 048
     Dates: start: 20210126, end: 20210502
  2. CALCIUM CARBONATE\CHOLECALCIFEROL [Concomitant]
     Active Substance: CALCIUM CARBONATE\CHOLECALCIFEROL
     Indication: Osteoporosis prophylaxis
  3. FLUNARIZINE HYDROCHLORIDE [Concomitant]
     Active Substance: FLUNARIZINE HYDROCHLORIDE
     Indication: Central nervous system lymphoma
     Dosage: 5 MILLIGRAM(1 TABLET), BID
     Route: 048
     Dates: start: 20200703, end: 20210131
  4. GINEXIN-F [Concomitant]
     Indication: Central nervous system lymphoma
     Dosage: 80 MILLIGRAM(1 TABLET), BID
     Route: 048
     Dates: start: 20200703, end: 20210219
  5. GLICLAZIDE [Concomitant]
     Active Substance: GLICLAZIDE
     Indication: Diabetes mellitus
     Dosage: 30 MILLIGRAM(1 TABLET), BID
     Route: 048
     Dates: start: 20210123, end: 20210123
  6. GLICLAZIDE [Concomitant]
     Active Substance: GLICLAZIDE
     Dosage: 30 MILLIGRAM(1 TABLET), QD
     Route: 048
     Dates: start: 20210124, end: 20210204
  7. ATORVASTATIN CALCIUM\EZETIMIBE [Concomitant]
     Active Substance: ATORVASTATIN CALCIUM\EZETIMIBE
     Indication: Dyslipidaemia
     Dosage: 1 TAB, PO, FREQUENCY 1/DAY
     Route: 048
     Dates: start: 20201007, end: 20210124
  8. ZELCOM [FLUBENDAZOLE] [Concomitant]
     Indication: Infection prophylaxis
     Dosage: 500 MILLIGRAM(1 TABLET), QD
     Route: 048
     Dates: start: 20210112, end: 20210112
  9. URSODIOL [Concomitant]
     Active Substance: URSODIOL
     Indication: Prophylaxis
     Dosage: 100 MILLIGRAM(1 TABLET), BID
     Route: 048
     Dates: start: 20210112, end: 20210112
  10. URSODIOL [Concomitant]
     Active Substance: URSODIOL
     Dosage: 100 MILLIGRAM(1 TABLET), TID
     Route: 048
     Dates: start: 20210113, end: 20210220
  11. THYMOGLOBULIN [Concomitant]
     Active Substance: LAPINE T-LYMPHOCYTE IMMUNE GLOBULIN
     Indication: Diffuse large B-cell lymphoma
     Dosage: 192.5 MILLIGRAM, FREQUENCY 1/DAY
     Route: 042
     Dates: start: 20210120, end: 20210121
  12. FLUDARA [Concomitant]
     Active Substance: FLUDARABINE PHOSPHATE
     Indication: Diffuse large B-cell lymphoma
     Dosage: 55.2 MILLIGRAM, FREQUENCY: 1/DAY
     Route: 042
     Dates: start: 20210113, end: 20210118
  13. PFIZER LEUCOVORIN [Concomitant]
     Indication: Prophylaxis
     Dosage: 18 MILLIGRAM, FREQUENCY: 1/DAY
     Route: 042
     Dates: start: 20210123, end: 20210123
  14. PFIZER LEUCOVORIN [Concomitant]
     Dosage: 24 MILLIGRAM, FREQUENCY: 1/DAY
     Route: 042
     Dates: start: 20210125, end: 20210128
  15. PROGRAF [Concomitant]
     Active Substance: TACROLIMUS
     Indication: Prophylaxis against graft versus host disease
     Dosage: STRENTH: 5MG/ML. DOSE: 2.2 MILLIGRAM, FREQUENCY: 1/DAY
     Route: 042
     Dates: start: 20210121, end: 20210125
  16. MYCAMINE [Concomitant]
     Active Substance: MICAFUNGIN SODIUM
     Indication: Antifungal prophylaxis
     Dosage: 50 MILLIGRAM, FREQUENCY: 1/DAY
     Route: 042
     Dates: start: 20210113, end: 20210131
  17. GODEX [ADENINE HYDROCHLORIDE;BIFENDATE;CARNITINE OROTATE;CYANOCOBALAMI [Concomitant]
     Indication: Prophylaxis
     Dosage: 1 CAP, PO, FREQUENCY: 3/DAY
     Route: 048
     Dates: start: 20210113, end: 20210131
  18. BENZYDAMINE HYDROCHLORIDE [Concomitant]
     Active Substance: BENZYDAMINE HYDROCHLORIDE
     Indication: Stomatitis
     Dosage: 20 MILLILITER, PRN. FORMULATION: GARGLE, ROUTE: ORAL GARGLE
     Dates: start: 20210113, end: 20210515
  19. GRASIN [Concomitant]
     Indication: Diffuse large B-cell lymphoma
     Dosage: PREFILLED SYRINGE INJ STRENGTH: 300?G/0.7ML. DOSE: 300 MCG, IV, FREQUENCY: 1/DAY
     Route: 042
     Dates: start: 20210123, end: 20210508
  20. BARACLE [Concomitant]
     Indication: Antiviral prophylaxis
     Dosage: 0.5 MILLIGRAM(1 TABLET), QD
     Route: 048
     Dates: start: 20210116
  21. YUHAN METHOTREXATE [Concomitant]
     Indication: Prophylaxis against graft versus host disease
     Dosage: STRENGTH: 50/2 MG/ML. DOSE. 9.2 MILLIGRAM,, IV, FREQUENCY: 1/DAY
     Route: 042
     Dates: start: 20210123, end: 20210202
  22. ZOYLEX [ACICLOVIR] [Concomitant]
     Indication: Infection prophylaxis
     Dosage: STRENGTH: 250/10 MG/ML. DOSE: 250 MILLIGRAM, FREQUENCY: 3/DAY
     Route: 042
     Dates: start: 20210113, end: 20210201

REACTIONS (3)
  - Bronchopulmonary aspergillosis [Fatal]
  - Septic shock [Fatal]
  - Drug ineffective [Unknown]

NARRATIVE: CASE EVENT DATE: 20210101
